FAERS Safety Report 5277170-9 (Version None)
Quarter: 2007Q1

REPORT INFORMATION
  Report Type: 
  Country: None (occurrence: None)
  Receive Date: 20061213
  Receipt Date: 20041021
  Transmission Date: 20070707
  Serious: No
  Sender: FDA-Public Use
  Company Number: 2004UW21915

PATIENT
  Age: 16 Year
  Sex: Male

DRUGS (2)
  1. SEROQUEL [Suspect]
     Dosage: 100 MG BID PO
     Route: 048
  2. ZITHROMAX [Concomitant]

REACTIONS (4)
  - DRUG LEVEL INCREASED [None]
  - HYPONATRAEMIA [None]
  - MENTAL STATUS CHANGES [None]
  - PARKINSONISM [None]
